FAERS Safety Report 7771126-X (Version None)
Quarter: 2011Q3

REPORT INFORMATION
  Report Type: 
  Country: None (occurrence: None)
  Receive Date: 20110922
  Receipt Date: 20110914
  Transmission Date: 20111222
  Serious: Yes (Hospitalization, Other)
  Sender: FDA-Public Use
  Company Number: US-ELI_LILLY_AND_COMPANY-US201106008851

PATIENT
  Age: 55 Year
  Sex: Male

DRUGS (3)
  1. EFFIENT [Suspect]
     Dosage: 10 MG, QD
     Dates: end: 20110626
  2. EFFIENT [Suspect]
     Indication: PERCUTANEOUS CORONARY INTERVENTION
     Dosage: 60 MG, LOADING DOSE
     Dates: start: 20110216, end: 20110216
  3. ASPIRIN [Concomitant]
     Dosage: UNK, UNKNOWN
     Route: 065

REACTIONS (2)
  - GASTROINTESTINAL ARTERIOVENOUS MALFORMATION [None]
  - GASTROINTESTINAL HAEMORRHAGE [None]
